FAERS Safety Report 16047660 (Version 1)
Quarter: 2019Q1

REPORT INFORMATION
  Report Type: Spontaneous
  Country: FR (occurrence: FR)
  Receive Date: 20190307
  Receipt Date: 20190307
  Transmission Date: 20190418
  Serious: Yes (Hospitalization, Other)
  Sender: FDA-Public Use
  Company Number: FR-BRISTOL-MYERS SQUIBB COMPANY-BMS-2019-021843

PATIENT
  Sex: Male
  Weight: 69 kg

DRUGS (2)
  1. YERVOY [Suspect]
     Active Substance: IPILIMUMAB
     Indication: MESOTHELIOMA
     Dosage: 1 MG/KG, UNK
     Route: 041
     Dates: start: 20160721, end: 20180622
  2. OPDIVO [Suspect]
     Active Substance: NIVOLUMAB
     Indication: MESOTHELIOMA
     Dosage: 3 MG/KG, UNK
     Route: 041
     Dates: start: 20160721, end: 20180622

REACTIONS (4)
  - Pruritus generalised [Recovering/Resolving]
  - Product use in unapproved indication [Unknown]
  - Rash maculo-papular [Recovering/Resolving]
  - Pemphigoid [Recovering/Resolving]

NARRATIVE: CASE EVENT DATE: 20161014
